FAERS Safety Report 14714150 (Version 1)
Quarter: 2018Q2

REPORT INFORMATION
  Report Type: Spontaneous
  Country: US (occurrence: US)
  Receive Date: 20180404
  Receipt Date: 20180404
  Transmission Date: 20180711
  Serious: No
  Sender: FDA-Public Use
  Company Number: US-ARBOR PHARMACEUTICALS, LLC-US-2017ARB000663

PATIENT

DRUGS (2)
  1. SKLICE [Suspect]
     Active Substance: IVERMECTIN
     Indication: LICE INFESTATION
     Dosage: 1 DF, SINGLE
     Dates: start: 20170703, end: 20170703
  2. SKLICE [Suspect]
     Active Substance: IVERMECTIN
     Dosage: 1 DF, SINGLE
     Dates: start: 20170710, end: 20170710

REACTIONS (1)
  - Pruritus [Not Recovered/Not Resolved]

NARRATIVE: CASE EVENT DATE: 201707
